FAERS Safety Report 9503498 (Version 2)
Quarter: 2013Q3

REPORT INFORMATION
  Report Type: Spontaneous
  Country: US (occurrence: US)
  Receive Date: 20130906
  Receipt Date: 20130926
  Transmission Date: 20140515
  Serious: Yes (Hospitalization, Other)
  Sender: FDA-Public Use
  Company Number: US-PFIZER INC-2013255403

PATIENT
  Age: 42 Year
  Sex: Male
  Weight: 71.66 kg

DRUGS (1)
  1. GABAPENTIN [Suspect]
     Dosage: 300 MG, 6X/DAY
     Route: 048
     Dates: start: 2012

REACTIONS (4)
  - Anaphylactic shock [Unknown]
  - Allergy to arthropod sting [Unknown]
  - Arthropod sting [Unknown]
  - Skin odour abnormal [Unknown]
